FAERS Safety Report 6717595-5 (Version None)
Quarter: 2010Q2

REPORT INFORMATION
  Report Type: 
  Country: None (occurrence: None)
  Receive Date: 20100503
  Receipt Date: 20100419
  Transmission Date: 20101027
  Serious: Yes (Hospitalization, Other)
  Sender: FDA-Public Use
  Company Number: 2009AC000147

PATIENT
  Age: 59 Year
  Sex: Female

DRUGS (102)
  1. DIGOXIN [Suspect]
     Dosage: 0.25 MG;QD;PO
     Route: 048
     Dates: end: 20080501
  2. DIGOXIN [Suspect]
     Dosage: 250 MCG;QD;PO
     Route: 048
     Dates: start: 19970401, end: 20080629
  3. DIGOXIN [Suspect]
     Indication: ATRIAL FIBRILLATION
     Dosage: 125 MCG;QD;PO
     Route: 048
     Dates: start: 20080630, end: 20080801
  4. CELEXA [Concomitant]
  5. COMBIVENT [Concomitant]
  6. BLIPIZIDE [Concomitant]
  7. NEXIUM [Concomitant]
  8. EFFEXOR [Concomitant]
  9. FUROSEMIDE [Concomitant]
  10. GLUCOPHAGE [Concomitant]
  11. NOVOLIN [Concomitant]
  12. NITROGLYCERIN [Concomitant]
  13. TOPROL-XL [Concomitant]
  14. PLAVIX [Concomitant]
  15. ASPIRIN [Concomitant]
  16. CARDIZEM [Concomitant]
  17. ZOCOR [Concomitant]
  18. VITAMIN E [Concomitant]
  19. LORAZEPAM [Concomitant]
  20. DILAUDID [Concomitant]
  21. CLOPIDOGREL [Concomitant]
  22. DILTIAZEM HCL [Concomitant]
  23. LIPITOR [Concomitant]
  24. ACTOS [Concomitant]
  25. METFORMIN HYDROCHLORIDE [Concomitant]
  26. PENTANYL PATCH [Concomitant]
  27. MULTI-VITAMIN [Concomitant]
  28. HYDROCODONE BITARTRATE AND ACETAMINOPHEN [Concomitant]
  29. DIZEPAM [Concomitant]
  30. CEFUROXIME [Concomitant]
  31. OXYCODONE HCL AND ACETAMINOPHEN [Concomitant]
  32. WARFARIN SODIUM [Concomitant]
  33. CANASA [Concomitant]
  34. NEXIUM [Concomitant]
  35. METOPROLOL [Concomitant]
  36. NITROGLYCERIN [Concomitant]
  37. MEPERITAB [Concomitant]
  38. NITROGLYCERIN [Concomitant]
  39. MEPERITAB [Concomitant]
  40. TEMAZEPAM [Concomitant]
  41. ACETAMINOPHEN W/ CODEINE TAB [Concomitant]
  42. HYDROMORPHONE HCL [Concomitant]
  43. PROPOXYPHENE-N [Concomitant]
  44. ALPRAZOLAM [Concomitant]
  45. NOVOLIN [Concomitant]
  46. FLUCONAZOLE [Concomitant]
  47. LEVAQUIN [Concomitant]
  48. VIGAMOX [Concomitant]
  49. LANTUS [Concomitant]
  50. CARTIA XT [Concomitant]
  51. KENALOG [Concomitant]
  52. TAZITIA [Concomitant]
  53. CELEXA [Concomitant]
  54. GLUCOTORL [Concomitant]
  55. CEFUROXIME [Concomitant]
  56. BEXTRA [Concomitant]
  57. ATENOLOL [Concomitant]
  58. DETROL [Concomitant]
  59. TRAMADOL HCL [Concomitant]
  60. DOXYCYCLINE [Concomitant]
  61. IPRATROPIUM [Concomitant]
  62. ALBUTEROL [Concomitant]
  63. DITROPAN [Concomitant]
  64. CLARITIN [Concomitant]
  65. DIPENOXYLATE/ATROPINE [Concomitant]
  66. ULTRAM [Concomitant]
  67. CEPHALEXIN [Concomitant]
  68. VICODIN [Concomitant]
  69. ACETAMINOPHEN [Concomitant]
  70. ADVIL [Concomitant]
  71. OCCURITE [Concomitant]
  72. ACCYZYME [Concomitant]
  73. QUINIDINE HCL [Concomitant]
  74. RYTHMOL [Concomitant]
  75. AMITRIPTLINE HYDROCHLORIDE TAB [Concomitant]
  76. LORAZEPAM [Concomitant]
  77. AMBIEN [Concomitant]
  78. VALIUM [Concomitant]
  79. BEXTIN [Concomitant]
  80. CLARITIN-D [Concomitant]
  81. RESTORIL [Concomitant]
  82. ROCEPHIN [Concomitant]
  83. CEFTIN [Concomitant]
  84. VIOXX [Concomitant]
  85. ATIVAN [Concomitant]
  86. PROTONIX [Concomitant]
  87. LOVENOX [Concomitant]
  88. TIAZAC [Concomitant]
  89. CALCIUM [Concomitant]
  90. XANAX [Concomitant]
  91. DIFLUCAN [Concomitant]
  92. LORTIMIN [Concomitant]
  93. OMEPRAZOLE [Concomitant]
  94. NIFEREX [Concomitant]
  95. PERCOCET [Concomitant]
  96. PHENERGAN [Concomitant]
  97. ZOFRAN [Concomitant]
  98. ZANAFLEX [Concomitant]
  99. CIPRO [Concomitant]
  100. MEPERITAB [Concomitant]
  101. THERAGRAN-M [Concomitant]
  102. OXYGEN [Concomitant]

REACTIONS (42)
  - ANAEMIA [None]
  - ANGINA PECTORIS [None]
  - ANXIETY [None]
  - APHASIA [None]
  - ARTHRALGIA [None]
  - ATRIAL FIBRILLATION [None]
  - BACK PAIN [None]
  - BLOOD CHLORIDE DECREASED [None]
  - BLOOD GLUCOSE INCREASED [None]
  - BRONCHITIS [None]
  - CARDIAC FAILURE CONGESTIVE [None]
  - CARDIOACTIVE DRUG LEVEL BELOW THERAPEUTIC [None]
  - CARDIOMEGALY [None]
  - CONFUSIONAL STATE [None]
  - CYSTITIS ESCHERICHIA [None]
  - DIZZINESS [None]
  - FALL [None]
  - GLOBULINS INCREASED [None]
  - HALLUCINATION [None]
  - HYPERHIDROSIS [None]
  - INJURY [None]
  - INTERNATIONAL NORMALISED RATIO INCREASED [None]
  - LIPOMATOUS HYPERTROPHY OF THE INTERATRIAL SEPTUM [None]
  - LOCALISED INFECTION [None]
  - MUSCULAR WEAKNESS [None]
  - NAUSEA [None]
  - NEOPLASM [None]
  - NODAL RHYTHM [None]
  - OBSTRUCTION [None]
  - PAIN [None]
  - POLYP [None]
  - PROTHROMBIN TIME PROLONGED [None]
  - PULMONARY FUNCTION TEST ABNORMAL [None]
  - RECTAL HAEMORRHAGE [None]
  - RHINORRHOEA [None]
  - SPUTUM DISCOLOURED [None]
  - SUPRAVENTRICULAR EXTRASYSTOLES [None]
  - THERAPEUTIC AGENT TOXICITY [None]
  - TRANSIENT ISCHAEMIC ATTACK [None]
  - URINE LEUKOCYTE ESTERASE POSITIVE [None]
  - VITAL CAPACITY DECREASED [None]
  - VOMITING [None]
